FAERS Safety Report 7759650-7 (Version None)
Quarter: 2011Q3

REPORT INFORMATION
  Report Type: 
  Country: None (occurrence: None)
  Receive Date: 20110919
  Receipt Date: 20110909
  Transmission Date: 20111222
  Serious: Yes (Death, Hospitalization, Other)
  Sender: FDA-Public Use
  Company Number: JP-EISAI INC-E7389-01417-SPO-JP

PATIENT
  Age: 61 Year
  Sex: Female

DRUGS (3)
  1. LASIX [Concomitant]
     Route: 048
  2. ALDACTONE [Concomitant]
     Route: 048
  3. HALAVEN [Suspect]
     Indication: BREAST CANCER RECURRENT
     Route: 041
     Dates: start: 20110812, end: 20110812

REACTIONS (5)
  - CONVULSION [None]
  - NEUTROPENIA [None]
  - DISSEMINATED INTRAVASCULAR COAGULATION [None]
  - ALTERED STATE OF CONSCIOUSNESS [None]
  - HYPERBILIRUBINAEMIA [None]
